FAERS Safety Report 19882560 (Version 2)
Quarter: 2021Q4

REPORT INFORMATION
  Report Type: Report from Study
  Country: US (occurrence: US)
  Receive Date: 20210925
  Receipt Date: 20211101
  Transmission Date: 20220304
  Serious: Yes (Hospitalization, Other)
  Sender: FDA-Public Use
  Company Number: US-NOVARTISPH-NVSC2021US213294

PATIENT
  Age: 37 Year
  Sex: Male
  Weight: 122.38 kg

DRUGS (3)
  1. MYFORTIC [Suspect]
     Active Substance: MYCOPHENOLATE SODIUM
     Indication: Kidney transplant rejection
     Dosage: 720 MG, BID
     Route: 048
     Dates: start: 2016
  2. PREDNISONE [Concomitant]
     Active Substance: PREDNISONE
     Indication: Kidney transplant rejection
     Dosage: 5 MG, QD
     Route: 048
     Dates: start: 2016
  3. ENVARSUS XR [Concomitant]
     Active Substance: TACROLIMUS
     Indication: Kidney transplant rejection
     Dosage: 7 MG, QD
     Route: 048
     Dates: start: 2016

REACTIONS (3)
  - Kidney transplant rejection [Not Recovered/Not Resolved]
  - Transplant rejection [Unknown]
  - Chest pain [Recovered/Resolved]

NARRATIVE: CASE EVENT DATE: 20210915
